FAERS Safety Report 8779952 (Version 1)
Quarter: 2012Q4

REPORT INFORMATION
  Report Type: Spontaneous
  Country: US (occurrence: None)
  Receive Date: 20120905
  Receipt Date: 20120905
  Transmission Date: 20130627
  Serious: Yes (Life-Threatening, Other)
  Sender: FDA-Public Use
  Company Number: None

PATIENT
  Age: 61 Year
  Sex: Female
  Weight: 77.11 kg

DRUGS (2)
  1. METRONIDAZOLE [Suspect]
     Indication: DIVERTICULITIS
     Route: 048
     Dates: start: 20120814, end: 20120819
  2. LEVOFLOXACIN HYDRATE [Suspect]
     Route: 048

REACTIONS (8)
  - Oropharyngeal pain [None]
  - Pruritus generalised [None]
  - Chills [None]
  - Skin exfoliation [None]
  - Abdominal distension [None]
  - Generalised erythema [None]
  - Insomnia [None]
  - Swelling [None]
